FAERS Safety Report 18477828 (Version 4)
Quarter: 2021Q1

REPORT INFORMATION
  Report Type: Spontaneous
  Country: US (occurrence: US)
  Receive Date: 20201108
  Receipt Date: 20210203
  Transmission Date: 20210419
  Serious: Yes (Death)
  Sender: FDA-Public Use
  Company Number: US-TEVA-2020-US-1840064

PATIENT
  Age: 60 Year
  Sex: Male

DRUGS (17)
  1. CLONAZEPAM ORAL TABLET 1MG [Concomitant]
     Route: 048
  2. PILOCARPINE HCL OPHTALMIC SOLUTION 1% [Concomitant]
     Route: 047
  3. HYDROXYZINE PAMOATE ORAL CAPSULE 50 MG [Concomitant]
     Route: 048
  4. LAMOTRIGINE ORAL TABLET 150 MG [Concomitant]
     Route: 048
  5. ATORVASTATIN CALCIUM ORAL TABLET 30 MG [Concomitant]
     Route: 048
  6. AUSTEDO [Suspect]
     Active Substance: DEUTETRABENAZINE
     Dosage: 24 MILLIGRAM DAILY;
     Route: 065
  7. BUSPIRONE HCL ORAL TABLET 30 MG [Concomitant]
     Route: 048
  8. MONTELUKAST SODIUM ORAL TABLET 10 MG [Concomitant]
     Route: 048
  9. PROPRANOLOL HCT ORAL TABLET 10 MG [Concomitant]
     Route: 048
  10. AUSTEDO [Suspect]
     Active Substance: DEUTETRABENAZINE
     Indication: TARDIVE DYSKINESIA
     Dosage: 18 MILLIGRAM DAILY;
     Route: 065
     Dates: start: 20200925
  11. NAPROXEN ORAL TABLET 500 MG [Concomitant]
     Route: 048
  12. PIMOZIDE ORAL TABLET 1 MG [Concomitant]
     Route: 048
  13. CARISOPRODOL ORAL TABLET 350 MG [Concomitant]
     Route: 048
  14. AUSTEDO [Suspect]
     Active Substance: DEUTETRABENAZINE
     Dosage: 12 MILLIGRAM DAILY;
     Route: 065
  15. MORPHINE SULFATE ORAL TABLET 30 MG [Concomitant]
     Route: 048
  16. GABAPENTIN ORAL CAPSULE 30 MG [Concomitant]
     Route: 048
  17. TRAZODONE HCL ORAL TABLET 50 MG [Concomitant]
     Route: 048

REACTIONS (6)
  - Death [Fatal]
  - Psychomotor hyperactivity [Not Recovered/Not Resolved]
  - Wrong dose [Unknown]
  - Agitation [Not Recovered/Not Resolved]
  - Discomfort [Not Recovered/Not Resolved]
  - Restlessness [Not Recovered/Not Resolved]
